FAERS Safety Report 8908058 (Version 2)
Quarter: 2012Q4

REPORT INFORMATION
  Report Type: 
  Country: US (occurrence: US)
  Receive Date: 20121114
  Receipt Date: 20121221
  Transmission Date: 20130627
  Serious: Yes (Death, Life-Threatening, Other)
  Sender: FDA-Public Use
  Company Number: PHEH2012US022396

PATIENT
  Age: 59 Year
  Sex: Male

DRUGS (5)
  1. CLOZARIL [Suspect]
     Indication: SCHIZOPHRENIA
     Dosage: 400 mg, QD
     Dates: end: 20121105
  2. SEROQUEL [Concomitant]
     Indication: SCHIZOPHRENIA
     Dosage: 100 mg daily
     Route: 048
     Dates: start: 2000
  3. EFFEXOR [Concomitant]
     Indication: DEPRESSION
     Dosage: 225 mg, QD
     Route: 048
     Dates: start: 2007
  4. ZOLOFT [Concomitant]
     Indication: DEPRESSION
     Dosage: 200 mg, QD
     Route: 048
     Dates: start: 2004
  5. KLONOPIN [Concomitant]
     Indication: ANXIETY
     Dosage: Less than 1 mg QD
     Route: 048
     Dates: start: 2004

REACTIONS (5)
  - Cardiac disorder [Fatal]
  - Granulocytopenia [Not Recovered/Not Resolved]
  - Neutropenia [Unknown]
  - Bone marrow failure [Unknown]
  - White blood cell count decreased [Unknown]
